FAERS Safety Report 8845511 (Version 1)
Quarter: 2012Q4

REPORT INFORMATION
  Report Type: 
  Country: US (occurrence: US)
  Receive Date: 20121017
  Receipt Date: 20121017
  Transmission Date: 20130627
  Serious: No
  Sender: FDA-Public Use
  Company Number: US-PFIZER INC-2012257060

PATIENT
  Age: 8 Year
  Sex: Female
  Weight: 31.75 kg

DRUGS (1)
  1. CHILDRENS ADVIL [Suspect]
     Indication: HEADACHE
     Dosage: UNK, single
     Dates: start: 201110, end: 201110

REACTIONS (1)
  - Rash [Recovered/Resolved]
